FAERS Safety Report 9478930 (Version 1)
Quarter: 2013Q3

REPORT INFORMATION
  Report Type: Spontaneous
  Country: US (occurrence: None)
  Receive Date: 20130823
  Receipt Date: 20130823
  Transmission Date: 20140515
  Serious: Yes (Hospitalization, Other)
  Sender: FDA-Public Use
  Company Number: AUR-APL-2013-06764

PATIENT
  Age: 62 Year
  Sex: Male

DRUGS (5)
  1. TRIMETHOPRIM + SULFAMETHOXAZOLE [Suspect]
     Indication: CELLULITIS
  2. PRAVASTATIN (PRAVASTATIN) [Concomitant]
  3. INSULIN GLARGINE (INSULIN GLARGINE) [Concomitant]
  4. INSULIN LISPRO (INSULIN LISPRO) [Concomitant]
  5. NAPROXEN (NAPROXEN) [Concomitant]

REACTIONS (10)
  - Jaundice [None]
  - Hyponatraemia [None]
  - Malaise [None]
  - Blood bilirubin increased [None]
  - Drug intolerance [None]
  - Cholestasis [None]
  - Idiosyncratic drug reaction [None]
  - Cholangitis sclerosing [None]
  - Drug-induced liver injury [None]
  - Hepatotoxicity [None]
